FAERS Safety Report 15131064 (Version 1)
Quarter: 2018Q3

REPORT INFORMATION
  Report Type: Spontaneous
  Country: FR (occurrence: FR)
  Receive Date: 20180711
  Receipt Date: 20180711
  Transmission Date: 20181010
  Serious: Yes (Other)
  Sender: FDA-Public Use
  Company Number: FR-PFIZER INC-2018273469

PATIENT
  Age: 65 Year
  Sex: Female
  Weight: 91 kg

DRUGS (10)
  1. AVASTIN [Suspect]
     Active Substance: BEVACIZUMAB
     Indication: OVARIAN CANCER METASTATIC
     Dosage: 1375 MG, CYCLIC
     Route: 041
     Dates: start: 20180404, end: 20180509
  2. ONDANSETRON [Concomitant]
     Active Substance: ONDANSETRON
     Indication: PROPHYLAXIS OF NAUSEA AND VOMITING
     Dosage: 8 MG, CYCLIC
     Route: 041
     Dates: start: 20171116, end: 20180523
  3. TEMERIT DUO [Concomitant]
     Active Substance: HYDROCHLOROTHIAZIDE\NEBIVOLOL HYDROCHLORIDE
     Indication: HYPERTENSION
     Dosage: UNK
     Route: 048
  4. AZANTAC [Concomitant]
     Active Substance: RANITIDINE HYDROCHLORIDE
     Indication: ALLERGY PROPHYLAXIS
     Dosage: 50 MG, CYCLIC
     Route: 041
     Dates: start: 20171116, end: 20180523
  5. PACLITAXEL. [Suspect]
     Active Substance: PACLITAXEL
     Indication: OVARIAN CANCER METASTATIC
     Dosage: 120 MG, CYCLIC
     Route: 041
     Dates: start: 20171116
  6. POLARAMINE [Concomitant]
     Active Substance: DEXCHLORPHENIRAMINE MALEATE
     Indication: ALLERGY PROPHYLAXIS
     Dosage: 5 MG, CYCLIC
     Route: 041
     Dates: start: 20171116, end: 20180523
  7. METHYLPREDNISOLONE. [Concomitant]
     Active Substance: METHYLPREDNISOLONE
     Indication: ALLERGY PROPHYLAXIS
     Dosage: 80 MG, CYCLIC
     Route: 041
     Dates: start: 20171116, end: 20180523
  8. CARBOPLATIN ACCORD [Suspect]
     Active Substance: CARBOPLATIN
     Indication: OVARIAN CANCER METASTATIC
     Dosage: 610 MG, CYCLIC
     Route: 041
     Dates: start: 20171116, end: 20180509
  9. CARBOPLATIN ACCORD [Suspect]
     Active Substance: CARBOPLATIN
     Dosage: 550 MG, UNK
     Route: 041
     Dates: start: 20180509
  10. ESOMEPRAZOLE [Concomitant]
     Active Substance: ESOMEPRAZOLE
     Dosage: 20 MG, 1X/DAY
     Route: 048

REACTIONS (2)
  - Vitreous floaters [Recovering/Resolving]
  - Vitreous detachment [Recovering/Resolving]

NARRATIVE: CASE EVENT DATE: 20180512
